FAERS Safety Report 10033421 (Version 1)
Quarter: 2014Q1

REPORT INFORMATION
  Report Type: Spontaneous
  Country: FR (occurrence: FR)
  Receive Date: 20140325
  Receipt Date: 20140325
  Transmission Date: 20141002
  Serious: Yes (Hospitalization)
  Sender: FDA-Public Use
  Company Number: FR-PFIZER INC-2014077510

PATIENT
  Age: 80 Year
  Sex: Female

DRUGS (4)
  1. XALATAN [Suspect]
     Dosage: UNK
     Dates: start: 200409, end: 201305
  2. ALPHAGAN [Suspect]
     Indication: GLAUCOMA
     Dosage: UNK
     Route: 047
     Dates: start: 200409, end: 201305
  3. COSOPT [Suspect]
     Indication: GLAUCOMA
     Dosage: UNK
     Dates: start: 200409, end: 201305
  4. FLUDEX [Concomitant]
     Dosage: UNK
     Route: 048
     Dates: start: 200811, end: 201305

REACTIONS (2)
  - Bradycardia [Recovered/Resolved]
  - Malaise [Recovered/Resolved]
